FAERS Safety Report 9577712 (Version 1)
Quarter: 2013Q4

REPORT INFORMATION
  Report Type: Spontaneous
  Country: US (occurrence: US)
  Receive Date: 20131001
  Receipt Date: 20131001
  Transmission Date: 20140711
  Serious: No
  Sender: FDA-Public Use
  Company Number: US-AMGEN-USASP2013009828

PATIENT
  Sex: Female

DRUGS (11)
  1. ENBREL [Suspect]
     Indication: PRODUCT USED FOR UNKNOWN INDICATION
     Dosage: 25 MG, 2 TIMES/WK
     Route: 058
  2. CYMBALTA [Concomitant]
     Dosage: 20 MG, UNK
  3. CENTRUM                            /02217401/ [Concomitant]
     Dosage: UNK
  4. LIPITOR [Concomitant]
     Dosage: 10 MG, UNK
  5. ATENOLOL [Concomitant]
     Dosage: 50 MG, UNK
  6. ADVAIR [Concomitant]
     Dosage: 100/50, UNK, UNK
  7. MIRALAX                            /00754501/ [Concomitant]
     Dosage: 3350 NF UNK, UNK
  8. VITAMIN D                          /00107901/ [Concomitant]
     Dosage: 1000 UNIT, UNK
  9. OXYCONTIN [Concomitant]
     Dosage: 30 MG, UNK
  10. FOLIC ACID [Concomitant]
     Dosage: UNK
  11. RAYOS [Concomitant]
     Dosage: 1 MG, UNK

REACTIONS (2)
  - Red blood cell sedimentation rate abnormal [Unknown]
  - Therapeutic response decreased [Unknown]
